FAERS Safety Report 18724215 (Version 2)
Quarter: 2021Q1

REPORT INFORMATION
  Report Type: Spontaneous
  Country: DE (occurrence: DE)
  Receive Date: 20210111
  Receipt Date: 20210115
  Transmission Date: 20210419
  Serious: Yes (Other)
  Sender: FDA-Public Use
  Company Number: DE-TAKEDA-2021TUS000350

PATIENT
  Sex: Female

DRUGS (1)
  1. ELVANSE ADULT [Suspect]
     Active Substance: LISDEXAMFETAMINE DIMESYLATE
     Indication: ATTENTION DEFICIT HYPERACTIVITY DISORDER
     Dosage: 70 MILLIGRAM, QD
     Route: 065

REACTIONS (3)
  - Drug ineffective [Unknown]
  - Fatigue [Unknown]
  - Gastric bypass [Unknown]

NARRATIVE: CASE EVENT DATE: 20201202
